FAERS Safety Report 5230850-3 (Version None)
Quarter: 2007Q1

REPORT INFORMATION
  Report Type: 
  Country: None (occurrence: None)
  Receive Date: 20070206
  Receipt Date: 20070126
  Transmission Date: 20070707
  Serious: Yes (Other)
  Sender: FDA-Public Use
  Company Number: JP-BAYER-200710082BYL

PATIENT
  Age: 32 Year
  Sex: Female

DRUGS (3)
  1. AVELOX [Suspect]
     Indication: SINUSITIS
     Dosage: TOTAL DAILY DOSE: 400 MG  UNIT DOSE: 400 MG
     Route: 048
  2. CELESTONE [Concomitant]
     Route: 048
  3. MUCODYNE [Concomitant]
     Route: 048

REACTIONS (2)
  - FEELING ABNORMAL [None]
  - FEELING DRUNK [None]
